FAERS Safety Report 9795262 (Version 1)
Quarter: 2014Q1

REPORT INFORMATION
  Report Type: Spontaneous
  Country: CN (occurrence: CN)
  Receive Date: 20140103
  Receipt Date: 20140103
  Transmission Date: 20141002
  Serious: Yes (Hospitalization)
  Sender: FDA-Public Use
  Company Number: CN-INDICUS PHARMA-000225

PATIENT
  Age: 86 Year
  Sex: Female

DRUGS (3)
  1. GLICLAZIDE [Concomitant]
     Indication: TYPE 2 DIABETES MELLITUS
     Dosage: MODIFIED-RELEASE FORMULATION
  2. METFORMIN HYDROCHLORIDE [Suspect]
     Indication: TYPE 2 DIABETES MELLITUS
  3. POLYETHYLENE GLYCOL [Suspect]
     Indication: BOWEL PREPARATION

REACTIONS (3)
  - Lactic acidosis [Recovering/Resolving]
  - Renal failure acute [Recovering/Resolving]
  - Dehydration [Unknown]
